FAERS Safety Report 17409203 (Version 1)
Quarter: 2020Q1

REPORT INFORMATION
  Report Type: Spontaneous
  Country: JP (occurrence: JP)
  Receive Date: 20200212
  Receipt Date: 20200212
  Transmission Date: 20200409
  Serious: Yes (Other)
  Sender: FDA-Public Use
  Company Number: JP-OTSUKA-2020_003870

PATIENT
  Age: 54 Year
  Sex: Female

DRUGS (3)
  1. SAMSCA [Suspect]
     Active Substance: TOLVAPTAN
     Indication: CONGENITAL CYSTIC KIDNEY DISEASE
     Dosage: 90MG/DAY, FREQUENCY UNKNOWN
     Route: 048
     Dates: start: 20190821, end: 20191212
  2. SAMSCA [Suspect]
     Active Substance: TOLVAPTAN
     Dosage: 60MG/DAY, FREQUENCY UNKNOWN
     Route: 048
     Dates: start: 20190801, end: 20190820
  3. SAMSCA [Suspect]
     Active Substance: TOLVAPTAN
     Dosage: 60MG/DAY, FREQUENCY UNKNOWN
     Route: 048
     Dates: start: 20191213, end: 20200117

REACTIONS (1)
  - Hepatic function abnormal [Unknown]

NARRATIVE: CASE EVENT DATE: 20191115
